FAERS Safety Report 18340226 (Version 1)
Quarter: 2020Q4

REPORT INFORMATION
  Report Type: Spontaneous
  Country: LV (occurrence: LV)
  Receive Date: 20201002
  Receipt Date: 20201002
  Transmission Date: 20210113
  Serious: Yes (Disabling, Other)
  Sender: FDA-Public Use
  Company Number: LV-TEVA-2020-LV-1833500

PATIENT
  Age: 72 Year
  Sex: Female
  Weight: 69 kg

DRUGS (2)
  1. IBANDRONIC ACID RATIOPHARM 3 MG SKIDUMS INJEKCIJAM PILNSLIRCE [Suspect]
     Active Substance: IBANDRONIC ACID
     Indication: OSTEOPOROSIS
     Dosage: 3 MG
     Route: 042
     Dates: start: 20200709, end: 20200709
  2. LOZAP 100 MG APVALKOTAS TABLETES [Concomitant]
     Indication: HYPERTENSION
     Dosage: 100 MG
     Route: 048
     Dates: start: 20200701

REACTIONS (4)
  - Toothache [Recovering/Resolving]
  - Pain in extremity [Recovering/Resolving]
  - Arthralgia [Recovering/Resolving]
  - Pulpitis dental [Recovering/Resolving]

NARRATIVE: CASE EVENT DATE: 20200709
